FAERS Safety Report 6424167-9 (Version None)
Quarter: 2009Q4

REPORT INFORMATION
  Report Type: 
  Country: None (occurrence: None)
  Receive Date: 20091102
  Receipt Date: 20091022
  Transmission Date: 20100525
  Serious: Yes (Hospitalization, Other)
  Sender: FDA-Public Use
  Company Number: US-BAXTER-2009BH015657

PATIENT
  Age: 69 Year
  Sex: Female

DRUGS (3)
  1. DIANEAL [Suspect]
     Indication: PERITONEAL DIALYSIS
     Route: 033
  2. EXTRANEAL [Suspect]
     Indication: PERITONEAL DIALYSIS
     Route: 033
  3. PAIN MEDICATION [Suspect]
     Indication: PAIN
     Route: 065
     Dates: start: 20090101

REACTIONS (2)
  - FOOT FRACTURE [None]
  - GASTROINTESTINAL HAEMORRHAGE [None]
